FAERS Safety Report 5076780-1 (Version None)
Quarter: 2006Q3

REPORT INFORMATION
  Report Type: 
  Country: None (occurrence: None)
  Receive Date: 20060810
  Receipt Date: 20060802
  Transmission Date: 20061208
  Serious: Yes (Hospitalization)
  Sender: FDA-Public Use
  Company Number: PHRM2006FR02241

PATIENT
  Age: 79 Year
  Sex: Male

DRUGS (4)
  1. TRILEPTAL [Suspect]
     Route: 048
     Dates: start: 20060415, end: 20060621
  2. CORDARONE [Suspect]
     Dosage: 200 MG, QD
     Route: 048
     Dates: start: 20060415, end: 20060601
  3. EFFERALGAN CODEINE [Concomitant]
     Route: 048
     Dates: start: 20060115, end: 20060608
  4. LEVOTHYROXINE SODIUM [Concomitant]
     Route: 048

REACTIONS (7)
  - ASTHENIA [None]
  - BLOOD ALKALINE PHOSPHATASE [None]
  - BLOOD ALKALINE PHOSPHATASE INCREASED [None]
  - CHOLESTASIS [None]
  - GAMMA-GLUTAMYLTRANSFERASE INCREASED [None]
  - NAUSEA [None]
  - VOMITING [None]
